FAERS Safety Report 14698918 (Version 2)
Quarter: 2020Q1

REPORT INFORMATION
  Report Type: Report from Study
  Country: PL (occurrence: PL)
  Receive Date: 20180330
  Receipt Date: 20200110
  Transmission Date: 20200409
  Serious: Yes (Hospitalization)
  Sender: FDA-Public Use
  Company Number: PL-ROCHE-1588604

PATIENT
  Age: 54 Year
  Sex: Female
  Weight: 99 kg

DRUGS (30)
  1. PERTUZUMAB. [Suspect]
     Active Substance: PERTUZUMAB
     Indication: HER-2 POSITIVE BREAST CANCER
     Dosage: LOADING DOSE
     Route: 042
     Dates: start: 20150505
  2. PERTUZUMAB. [Suspect]
     Active Substance: PERTUZUMAB
     Dosage: MAINTAINANCE DOSE?DATE OF MOST RECENT DOSE OF PERTUZUMAB PRIOR TO EVENT (THROMBOCYTOPENIA): 26/MAY/2
     Route: 042
     Dates: start: 20150526
  3. DOXORUBICIN [Suspect]
     Active Substance: DOXORUBICIN
     Indication: HER-2 POSITIVE BREAST CANCER
     Route: 065
     Dates: start: 20150126
  4. TELMIZEK [Concomitant]
     Active Substance: TELMISARTAN
     Indication: HYPERTENSION
     Route: 065
     Dates: start: 201311
  5. HEPAREGEN [Concomitant]
     Indication: HEPATIC FUNCTION ABNORMAL
     Route: 065
     Dates: start: 20150530, end: 20150605
  6. CONTROLOC [Concomitant]
     Active Substance: PANTOPRAZOLE SODIUM
     Indication: PROPHYLAXIS AGAINST GASTROINTESTINAL ULCER
     Route: 065
     Dates: start: 20150904
  7. CYCLOPHOSPHAMIDE. [Suspect]
     Active Substance: CYCLOPHOSPHAMIDE
     Indication: HER-2 POSITIVE BREAST CANCER
     Route: 065
     Dates: start: 20150126
  8. DEXAVEN [Concomitant]
     Active Substance: DEXAMETHASONE
     Indication: DYSPNOEA
     Route: 065
     Dates: start: 20150626, end: 20150701
  9. NO-SPA [Concomitant]
     Active Substance: DROTAVERINE HYDROCHLORIDE
     Route: 065
     Dates: start: 20150626, end: 20150701
  10. METFORMAX [Concomitant]
     Active Substance: METFORMIN HYDROCHLORIDE
     Indication: DIABETES MELLITUS
     Route: 065
     Dates: start: 20150814
  11. ATORVOX [Concomitant]
     Active Substance: ATORVASTATIN
     Indication: HYPERLIPIDAEMIA
     Route: 065
     Dates: start: 20150814
  12. TRASTUZUMAB EMTANSINE [Suspect]
     Active Substance: ADO-TRASTUZUMAB EMTANSINE
     Indication: HER-2 POSITIVE BREAST CANCER
     Dosage: DOSE OF LAST TRASTUZUMAB EMTANSINE: 360 MG?DATE OF MOST RECENT DOSE OF TRASTUZUMAB EMTANSINE PRIOR T
     Route: 042
     Dates: start: 20150505
  13. PANTOPRAZOLE [Concomitant]
     Active Substance: PANTOPRAZOLE
     Indication: PROPHYLAXIS
  14. HELICID [OMEPRAZOLE] [Concomitant]
     Active Substance: OMEPRAZOLE
     Indication: GASTRIC ULCER
     Route: 065
     Dates: start: 20150626, end: 20150701
  15. CIPRONEX [CIPROFLOXACIN] [Concomitant]
     Indication: INFECTION
  16. NO-SPA [Concomitant]
     Active Substance: DROTAVERINE HYDROCHLORIDE
     Route: 065
     Dates: start: 20150530, end: 20150601
  17. ZAFIRON [Concomitant]
     Indication: DYSPNOEA
     Route: 065
     Dates: start: 20150701
  18. NEUROVIT [CYANOCOBALAMIN;PYRIDOXINE HYDROCHLORIDE;THIAMINE HYDROCHLORI [Concomitant]
     Indication: POLYNEUROPATHY
     Route: 065
     Dates: start: 20150717
  19. LAKCID [LACTOBACILLUS RHAMNOSUS] [Concomitant]
     Route: 065
     Dates: start: 20150530, end: 20150605
  20. PANTOPRAZOLE [Concomitant]
     Active Substance: PANTOPRAZOLE
     Indication: GASTRIC ULCER
  21. METYPRED [METHYLPREDNISOLONE] [Concomitant]
     Active Substance: METHYLPREDNISOLONE
     Indication: THROMBOCYTOPENIA
     Route: 065
     Dates: start: 20150707
  22. EUTHYROX [Concomitant]
     Active Substance: LEVOTHYROXINE SODIUM
     Indication: HYPOTHYROIDISM
     Route: 065
     Dates: start: 201411
  23. CIPRONEX [CIPROFLOXACIN] [Concomitant]
     Indication: PROPHYLAXIS
     Route: 065
     Dates: start: 20150530, end: 20150605
  24. POLFILIN [Concomitant]
     Active Substance: PENTOXIFYLLINE
     Indication: POLYNEUROPATHY
     Route: 065
     Dates: start: 20150717
  25. ZAFIRON [Concomitant]
     Indication: DYSPNOEA
     Route: 065
     Dates: start: 20150701
  26. PANTOPRAZOLE [Concomitant]
     Active Substance: PANTOPRAZOLE
     Indication: HEPATIC FUNCTION ABNORMAL
     Route: 065
     Dates: start: 20150530, end: 20150605
  27. MAGNEZIN [MAGNESIUM CARBONATE] [Concomitant]
     Route: 065
     Dates: start: 20150814
  28. ESSENTIALE FORTE [Concomitant]
     Indication: HEPATIC FUNCTION ABNORMAL
     Route: 065
     Dates: start: 20150530
  29. DEXAVEN [Concomitant]
     Active Substance: DEXAMETHASONE
     Indication: THROMBOCYTOPENIA
     Route: 065
     Dates: start: 20150531, end: 20150601
  30. THIOCODIN [CODEINE PHOSPHATE;SULFOGAIACOL] [Concomitant]
     Indication: COUGH
     Route: 065
     Dates: start: 20150630, end: 20150701

REACTIONS (2)
  - Thrombocytopenia [Recovered/Resolved]
  - Respiratory tract infection [Recovered/Resolved]

NARRATIVE: CASE EVENT DATE: 20150530
